FAERS Safety Report 20471720 (Version 3)
Quarter: 2022Q1

REPORT INFORMATION
  Report Type: Report from Study
  Country: CN (occurrence: CN)
  Receive Date: 20220214
  Receipt Date: 20220325
  Transmission Date: 20220423
  Serious: Yes (Hospitalization)
  Sender: FDA-Public Use
  Company Number: CN-PFIZER INC-202200232459

PATIENT
  Age: 53 Year
  Sex: Female
  Weight: 62 kg

DRUGS (5)
  1. EPIRUBICIN HYDROCHLORIDE [Suspect]
     Active Substance: EPIRUBICIN HYDROCHLORIDE
     Indication: Triple negative breast cancer
     Dosage: ON 11JAN2022 MOST RECENT DOSE OF EPIRUBICIN 149.4 MG ADMINISTERED (90MG/M2 1 IN 2 WK)
     Route: 042
     Dates: start: 20211229
  2. PACLITAXEL [Suspect]
     Active Substance: PACLITAXEL
     Indication: Triple negative breast cancer
     Dosage: MOST RECENT DOSE OF PACLITAXEL 132MG ADMINISTERED (80 MG/M2 1 IN 1 WK)
     Route: 042
     Dates: start: 20210907
  3. CYCLOPHOSPHAMIDE [Suspect]
     Active Substance: CYCLOPHOSPHAMIDE
     Indication: Triple negative breast cancer
     Dosage: ON 11JAN2022 MOST RECENT DOSE OF CYCLOPHOSPHAMIDE 996 MG ADMINISTERED (600MG/M2 1 IN 2 WK)
     Route: 042
     Dates: start: 20211229
  4. PEGFILGRASTIM [Concomitant]
     Active Substance: PEGFILGRASTIM
     Indication: Triple negative breast cancer
     Dosage: 6 MG, 1 IN 2 WK
     Route: 058
     Dates: start: 20211231, end: 20211231
  5. PEGFILGRASTIM [Concomitant]
     Active Substance: PEGFILGRASTIM
     Dosage: 6 MG, 1 IN 2 WK
     Route: 058
     Dates: start: 20220113, end: 20220113

REACTIONS (1)
  - Herpes zoster [Recovered/Resolved]

NARRATIVE: CASE EVENT DATE: 20220117
